FAERS Safety Report 8246216-8 (Version None)
Quarter: 2012Q1

REPORT INFORMATION
  Report Type: 
  Country: None (occurrence: None)
  Receive Date: 20120328
  Receipt Date: 20120328
  Transmission Date: 20120608
  Serious: No
  Sender: FDA-Public Use
  Company Number: None

PATIENT
  Sex: Female
  Weight: 49.8957 kg

DRUGS (1)
  1. CYMBALTA [Suspect]
     Dosage: DAILY

REACTIONS (5)
  - CONFUSIONAL STATE [None]
  - SKIN LESION [None]
  - DIPLOPIA [None]
  - IRRITABLE BOWEL SYNDROME [None]
  - ERYTHEMA [None]
